FAERS Safety Report 22176493 (Version 1)
Quarter: 2023Q2

REPORT INFORMATION
  Report Type: Spontaneous
  Country: US (occurrence: US)
  Receive Date: 20230405
  Receipt Date: 20230405
  Transmission Date: 20230721
  Serious: No
  Sender: FDA-Public Use
  Company Number: US-BAYER-2023A044765

PATIENT
  Age: 46 Year
  Sex: Female

DRUGS (1)
  1. MIRALAX [Suspect]
     Active Substance: POLYETHYLENE GLYCOL 3350
     Indication: Colonoscopy
     Dosage: UNK, NEED TO TAKE 238 G DOSE
     Route: 048
     Dates: start: 20230404, end: 20230404

REACTIONS (2)
  - Product use issue [Recovered/Resolved with Sequelae]
  - Off label use [Recovered/Resolved with Sequelae]

NARRATIVE: CASE EVENT DATE: 20230404
